FAERS Safety Report 19784758 (Version 1)
Quarter: 2021Q3

REPORT INFORMATION
  Report Type: Spontaneous
  Country: US (occurrence: US)
  Receive Date: 20210903
  Receipt Date: 20210903
  Transmission Date: 20211014
  Serious: Yes (Other)
  Sender: FDA-Public Use
  Company Number: None

PATIENT
  Age: 70 Year
  Sex: Female
  Weight: 76.7 kg

DRUGS (8)
  1. PANTOPRAZOLE 40 MG ORAL DELAYED RELEASE TABLET [Concomitant]
     Dates: start: 20210809
  2. FLUTICASONE 50 MCG/INH NASAL SPRAY [Concomitant]
     Dates: start: 20201020
  3. PROLIA [Suspect]
     Active Substance: DENOSUMAB
     Indication: OSTEOPOROSIS
     Dosage: ?          OTHER FREQUENCY:EVERY 6 MONTHS;?
     Route: 058
     Dates: start: 20210701, end: 20210701
  4. VALSARTAN?HYDROCHLOROTHIAZIDE 160 MG?12.5 MG ORAL TABLET [Concomitant]
     Dates: start: 20210730
  5. TRIAMCINOLONE 0.1% TOPICAL OINTMENT [Concomitant]
     Dates: start: 20210903
  6. CYANOCOBALAMIN 1000 MCG/ML INJ. [Concomitant]
     Dates: start: 20210623
  7. LEVOTHYROXINE 50 MCG ORAL TABLET [Concomitant]
     Dates: start: 20210128
  8. CETIRIZINE 10 MG ORAL TABLET [Concomitant]
     Dates: start: 20191203

REACTIONS (4)
  - Oropharyngeal pain [None]
  - Pruritus [None]
  - Rash [None]
  - Pain [None]

NARRATIVE: CASE EVENT DATE: 20210715
